FAERS Safety Report 9712834 (Version 1)
Quarter: 2013Q4

REPORT INFORMATION
  Report Type: Spontaneous
  Country: US (occurrence: US)
  Receive Date: 20131126
  Receipt Date: 20131126
  Transmission Date: 20140711
  Serious: No
  Sender: FDA-Public Use
  Company Number: US-BRISTOL-MYERS SQUIBB COMPANY-18926006

PATIENT
  Age: 65 Year
  Sex: Female
  Weight: 112.47 kg

DRUGS (2)
  1. BYDUREON [Suspect]
     Indication: TYPE 2 DIABETES MELLITUS
  2. METFORMIN HCL [Suspect]
     Route: 048

REACTIONS (9)
  - Injection site haemorrhage [Unknown]
  - Injection site bruising [Unknown]
  - Injection site extravasation [Unknown]
  - Injection site nodule [Recovering/Resolving]
  - Injection site pain [Unknown]
  - Blood glucose increased [Unknown]
  - Nausea [Unknown]
  - Weight decreased [Unknown]
  - Dyspepsia [Unknown]
